FAERS Safety Report 12393835 (Version 1)
Quarter: 2016Q2

REPORT INFORMATION
  Report Type: Spontaneous
  Country: US (occurrence: None)
  Receive Date: 20160520
  Receipt Date: 20160520
  Transmission Date: 20160815
  Serious: Yes (Hospitalization, Disabling, Other)
  Sender: FDA-Public Use
  Company Number: None

PATIENT
  Age: 45 Year
  Sex: Female
  Weight: 60.78 kg

DRUGS (5)
  1. MULTIVITAMIN [Concomitant]
     Active Substance: VITAMINS
  2. NUFEMME HORMONAL PELIET (PROGESTERONE INGREDIENT) [Suspect]
     Active Substance: PROGESTERONE
     Indication: PRODUCT USED FOR UNKNOWN INDICATION
     Dosage: GIVEN INTO/UNDER THE SKIN
     Route: 058
     Dates: start: 20160125, end: 20160428
  3. COQ10 [Concomitant]
     Active Substance: UBIDECARENONE
  4. PRO-BIOTICS [Concomitant]
  5. ANTIBIOTICS [Concomitant]
     Active Substance: UNSPECIFIED INGREDIENT

REACTIONS (5)
  - Impaired work ability [None]
  - C-reactive protein increased [None]
  - Abscess [None]
  - White blood cell count increased [None]
  - Fibrin D dimer increased [None]

NARRATIVE: CASE EVENT DATE: 20160125
